FAERS Safety Report 4922328-9 (Version None)
Quarter: 2006Q1

REPORT INFORMATION
  Report Type: 
  Country: None (occurrence: None)
  Receive Date: 20060224
  Receipt Date: 20050112
  Transmission Date: 20060701
  Serious: Yes (Hospitalization)
  Sender: FDA-Public Use
  Company Number: US-MERCK-0501USA02382

PATIENT
  Age: 51 Year
  Sex: Female
  Weight: 95 kg

DRUGS (1)
  1. VIOXX [Suspect]
     Indication: BACK PAIN
     Route: 048
     Dates: start: 20030301, end: 20030601

REACTIONS (18)
  - ACUTE MYOCARDIAL INFARCTION [None]
  - APPENDIX DISORDER [None]
  - CORONARY ARTERY DISEASE [None]
  - DEPRESSION [None]
  - DRUG INEFFECTIVE [None]
  - DRUG INTOLERANCE [None]
  - EXTENSOR PLANTAR RESPONSE [None]
  - GALLBLADDER DISORDER [None]
  - HYPERLIPIDAEMIA [None]
  - HYPERTRIGLYCERIDAEMIA [None]
  - HYPOAESTHESIA [None]
  - MENORRHAGIA [None]
  - MUSCULOSKELETAL CHEST PAIN [None]
  - PAIN IN EXTREMITY [None]
  - POLYP [None]
  - SLEEP DISORDER [None]
  - UTERINE LEIOMYOMA [None]
  - VENTRICULAR DYSFUNCTION [None]
